FAERS Safety Report 16732205 (Version 1)
Quarter: 2019Q3

REPORT INFORMATION
  Report Type: Spontaneous
  Country: FR (occurrence: FR)
  Receive Date: 20190822
  Receipt Date: 20190822
  Transmission Date: 20191005
  Serious: Yes (Hospitalization)
  Sender: FDA-Public Use
  Company Number: PHHY2019FR179822

PATIENT
  Sex: Male
  Weight: 51 kg

DRUGS (1)
  1. COSENTYX [Suspect]
     Active Substance: SECUKINUMAB
     Indication: PRODUCT USED FOR UNKNOWN INDICATION
     Dosage: UNK
     Route: 058
     Dates: start: 20180716, end: 20190711

REACTIONS (4)
  - Skin lesion [Unknown]
  - Scratch [Unknown]
  - Pruritus [Unknown]
  - Prurigo [Unknown]
